FAERS Safety Report 13759184 (Version 1)
Quarter: 2017Q3

REPORT INFORMATION
  Report Type: Spontaneous
  Country: CN (occurrence: CN)
  Receive Date: 20170717
  Receipt Date: 20170717
  Transmission Date: 20171127
  Serious: Yes (Hospitalization, Other)
  Sender: FDA-Public Use
  Company Number: CN-ASTELLAS-2017US027673

PATIENT
  Age: 32 Year
  Sex: Male

DRUGS (2)
  1. MYCOPHENOLATE SODIUM [Concomitant]
     Active Substance: MYCOPHENOLATE SODIUM
     Indication: LIVER TRANSPLANT
     Dosage: UNK UNK, UNKNOWN FREQ.
     Route: 065
  2. TACROLIMUS. [Suspect]
     Active Substance: TACROLIMUS
     Indication: LIVER TRANSPLANT
     Dosage: UNK UNK, UNKNOWN FREQ.
     Route: 065

REACTIONS (5)
  - Meningitis cryptococcal [Recovered/Resolved]
  - Inflammatory bowel disease [Recovering/Resolving]
  - Cholangitis [Unknown]
  - Pruritus [Unknown]
  - Cholangitis sclerosing [Unknown]

NARRATIVE: CASE EVENT DATE: 201408
